FAERS Safety Report 24136818 (Version 1)
Quarter: 2024Q3

REPORT INFORMATION
  Report Type: Spontaneous
  Country: SA (occurrence: SA)
  Receive Date: 20240725
  Receipt Date: 20240725
  Transmission Date: 20241016
  Serious: Yes (Hospitalization)
  Sender: EISAI
  Company Number: SA-Eisai-EC-2024-170443

PATIENT
  Age: 15 Year
  Sex: Female

DRUGS (2)
  1. PERAMPANEL [Suspect]
     Active Substance: PERAMPANEL
     Indication: Epilepsy
     Dosage: DOSE AND FREQUENCY UNKNOWN
     Route: 048
  2. PERAMPANEL [Suspect]
     Active Substance: PERAMPANEL
     Dosage: TITRATED TO 4MG.
     Route: 048

REACTIONS (1)
  - Substance-induced psychotic disorder [Recovered/Resolved]
